FAERS Safety Report 7227805-6 (Version None)
Quarter: 2011Q1

REPORT INFORMATION
  Report Type: 
  Country: None (occurrence: None)
  Receive Date: 20110114
  Receipt Date: 20110112
  Transmission Date: 20110831
  Serious: No
  Sender: FDA-Public Use
  Company Number: JP-JNJFOC-20110103405

PATIENT

DRUGS (1)
  1. DUROTEP MT [Suspect]
     Indication: ILL-DEFINED DISORDER
     Dosage: HALF OF 12. 5 UG/HR PATCH WAS USED
     Route: 062

REACTIONS (1)
  - WRONG TECHNIQUE IN DRUG USAGE PROCESS [None]
